FAERS Safety Report 5235858-X (Version None)
Quarter: 2007Q1

REPORT INFORMATION
  Report Type: 
  Country: None (occurrence: None)
  Receive Date: 20061208
  Receipt Date: 20060509
  Transmission Date: 20070707
  Serious: Yes (Other)
  Sender: FDA-Public Use
  Company Number: 2006UW09092

PATIENT
  Sex: Male

DRUGS (2)
  1. ZESTORETIC [Suspect]
     Indication: BLOOD PRESSURE INCREASED
     Dates: start: 20051201
  2. CRESTOR [Suspect]
     Dates: start: 20051201

REACTIONS (1)
  - BLOOD CREATINE PHOSPHOKINASE INCREASED [None]
